FAERS Safety Report 8444525-0 (Version None)
Quarter: 2012Q2

REPORT INFORMATION
  Report Type: 
  Country: None (occurrence: None)
  Receive Date: 20120618
  Receipt Date: 20120606
  Transmission Date: 20120825
  Serious: Yes (Congenital Anomaly)
  Sender: FDA-Public Use
  Company Number: DE-TEVA-342369GER

PATIENT
  Age: 0 Year
  Sex: Male
  Weight: 2.505 kg

DRUGS (3)
  1. COPAXONE [Suspect]
     Indication: MULTIPLE SCLEROSIS
     Dosage: 20 [MG/D ]
     Route: 064
     Dates: end: 20100110
  2. FOLIC ACID [Concomitant]
     Indication: VITAMIN SUPPLEMENTATION
     Route: 064
     Dates: end: 20100110
  3. CYTOTEC [Concomitant]
     Indication: LABOUR INDUCTION
     Route: 064

REACTIONS (2)
  - HYPOSPADIAS [None]
  - CONGENITAL INGUINAL HERNIA [None]
